FAERS Safety Report 4894978-X (Version None)
Quarter: 2006Q1

REPORT INFORMATION
  Report Type: 
  Country: None (occurrence: None)
  Receive Date: 20060130
  Receipt Date: 20050621
  Transmission Date: 20060701
  Serious: No
  Sender: FDA-Public Use
  Company Number: US-BRISTOL-MYERS SQUIBB COMPANY-13010590

PATIENT

DRUGS (1)
  1. GLUCOPHAGE [Suspect]

REACTIONS (1)
  - URINE ODOUR ABNORMAL [None]
